FAERS Safety Report 23247210 (Version 1)
Quarter: 2023Q4

REPORT INFORMATION
  Report Type: Spontaneous
  Country: US (occurrence: None)
  Receive Date: 20231129
  Receipt Date: 20231129
  Transmission Date: 20240110
  Serious: Yes (Death)
  Sender: FDA-Public Use
  Company Number: None

PATIENT
  Age: 61 Year
  Sex: Male

DRUGS (1)
  1. OPDIVO [Suspect]
     Active Substance: NIVOLUMAB
     Indication: Hepatic cancer
     Dosage: 480MG Q 4 WEEKS IV
     Route: 042
     Dates: start: 20221202, end: 20230313

REACTIONS (1)
  - Death [None]

NARRATIVE: CASE EVENT DATE: 20221129
